FAERS Safety Report 12949269 (Version 1)
Quarter: 2016Q4

REPORT INFORMATION
  Report Type: Spontaneous
  Country: US (occurrence: US)
  Receive Date: 20161117
  Receipt Date: 20161117
  Transmission Date: 20170207
  Serious: No
  Sender: FDA-Public Use
  Company Number: US-PFIZER INC-2016529511

PATIENT
  Age: 72 Year
  Sex: Male

DRUGS (2)
  1. XELJANZ [Suspect]
     Active Substance: TOFACITINIB CITRATE
     Indication: BENIGN PROSTATIC HYPERPLASIA
  2. XELJANZ [Suspect]
     Active Substance: TOFACITINIB CITRATE
     Indication: NEPHROLITHIASIS
     Dosage: 5 MG, UNK

REACTIONS (3)
  - Liver disorder [Not Recovered/Not Resolved]
  - Blood phosphorus increased [Unknown]
  - Product use issue [Unknown]

NARRATIVE: CASE EVENT DATE: 20161111
